FAERS Safety Report 6329829-X (Version None)
Quarter: 2009Q3

REPORT INFORMATION
  Report Type: 
  Country: None (occurrence: None)
  Receive Date: 20090826
  Receipt Date: 20090723
  Transmission Date: 20100115
  Serious: No
  Sender: FDA-Public Use
  Company Number: US-ALLERGAN-0910374US

PATIENT
  Age: 44 Year
  Sex: Female

DRUGS (1)
  1. ACZONE GEL 5% [Suspect]
     Indication: ACNE CYSTIC
     Dosage: UNK, BID
     Route: 061

REACTIONS (1)
  - MILIA [None]
